FAERS Safety Report 21987941 (Version 2)
Quarter: 2023Q1

REPORT INFORMATION
  Report Type: Report from Study
  Country: US (occurrence: US)
  Receive Date: 20230214
  Receipt Date: 20230217
  Transmission Date: 20230417
  Serious: No
  Sender: FDA-Public Use
  Company Number: US-002147023-NVSC2023US027857

PATIENT
  Sex: Female

DRUGS (1)
  1. ENTRESTO [Suspect]
     Active Substance: SACUBITRIL\VALSARTAN
     Indication: Product used for unknown indication
     Dosage: UNK, BID
     Route: 048
     Dates: start: 2022

REACTIONS (7)
  - Fatigue [Unknown]
  - Malaise [Unknown]
  - Mental disorder [Unknown]
  - Dry mouth [Unknown]
  - Cough [Unknown]
  - Fear [Unknown]
  - Panic disorder [Unknown]
